FAERS Safety Report 25088076 (Version 1)
Quarter: 2025Q1

REPORT INFORMATION
  Report Type: Report from Study
  Country: US (occurrence: US)
  Receive Date: 20250318
  Receipt Date: 20250318
  Transmission Date: 20250409
  Serious: Yes (Other)
  Sender: ACADIA PHARMACEUTICALS
  Company Number: US-ACADIA PHARMACEUTICALS INC.-ACA-2025-PIM-002889

PATIENT
  Sex: Male

DRUGS (15)
  1. NUPLAZID [Suspect]
     Active Substance: PIMAVANSERIN TARTRATE
     Indication: Hallucination
     Dosage: 34 MILLIGRAM, QD
     Route: 048
     Dates: start: 20250211, end: 20250307
  2. NUPLAZID [Suspect]
     Active Substance: PIMAVANSERIN TARTRATE
     Indication: Dementia with Lewy bodies
  3. AMLODIPINE [Concomitant]
     Active Substance: AMLODIPINE BESYLATE
  4. CARBIDOPA\LEVODOPA [Concomitant]
     Active Substance: CARBIDOPA\LEVODOPA
  5. ESOMEPRAZOLE MAGNESIUM [Concomitant]
     Active Substance: ESOMEPRAZOLE MAGNESIUM
  6. GABAPENTIN [Concomitant]
     Active Substance: GABAPENTIN
  7. HUMALOG [Concomitant]
     Active Substance: INSULIN LISPRO
  8. HYDROCHLOROTHIAZIDE [Concomitant]
     Active Substance: HYDROCHLOROTHIAZIDE
  9. METOCLOPRAMIDE [Concomitant]
     Active Substance: METOCLOPRAMIDE
  10. METOPROLOL SUCCINATE [Concomitant]
     Active Substance: METOPROLOL SUCCINATE
  11. OLANZAPINE [Concomitant]
     Active Substance: OLANZAPINE
  12. ONDANSETRON [Concomitant]
     Active Substance: ONDANSETRON
  13. QUETIAPINE [Concomitant]
     Active Substance: QUETIAPINE
  14. TAMSULOSIN [Concomitant]
     Active Substance: TAMSULOSIN
  15. TIZANIDINE [Concomitant]
     Active Substance: TIZANIDINE

REACTIONS (2)
  - Hallucination [Unknown]
  - Mood altered [Unknown]
